FAERS Safety Report 9098170 (Version 1)
Quarter: 2013Q1

REPORT INFORMATION
  Report Type: Spontaneous
  Country: AT (occurrence: AT)
  Receive Date: 20130213
  Receipt Date: 20130213
  Transmission Date: 20140127
  Serious: Yes (Hospitalization, Other)
  Sender: FDA-Public Use
  Company Number: AT-PFIZER INC-2013054153

PATIENT
  Age: 74 Year
  Sex: Female

DRUGS (9)
  1. LYRICA [Suspect]
     Dosage: 150 MG, 1X/DAY
     Dates: start: 20121009
  2. RIVOTRIL [Suspect]
     Dosage: 5 MG/DAY
     Dates: start: 20121008
  3. TRITTICO [Suspect]
     Dosage: 150 MG/DAY
  4. DEANXIT [Suspect]
     Dosage: 2 DF/DAY
  5. SAROTEN [Suspect]
     Dosage: 25 MG/DAY
     Dates: start: 20121009, end: 20121015
  6. ATACAND [Concomitant]
     Dosage: UNK
     Dates: start: 20121010, end: 20121022
  7. EFECTIN [Concomitant]
     Dosage: 75 MG, 1X/DAY
     Dates: start: 20121008, end: 20121010
  8. EFECTIN [Concomitant]
     Dosage: 150 MG, 1X/DAY
     Dates: start: 20121011, end: 20121022
  9. UNASYN [Concomitant]
     Dosage: 6000 MG, 1X/DAY
     Dates: start: 20121004, end: 20121011

REACTIONS (3)
  - Femur fracture [Recovered/Resolved]
  - Fall [Recovered/Resolved]
  - Contusion [Recovered/Resolved]
